FAERS Safety Report 17668849 (Version 2)
Quarter: 2020Q2

REPORT INFORMATION
  Report Type: Spontaneous
  Country: ES (occurrence: ES)
  Receive Date: 20200415
  Receipt Date: 20200428
  Transmission Date: 20200713
  Serious: Yes (Other)
  Sender: FDA-Public Use
  Company Number: ES-TEVA-2020-ES-1223398

PATIENT
  Age: 7 Month
  Sex: Female
  Weight: 6.27 kg

DRUGS (1)
  1. OP2455 - OMEPRAZOL FORMULA MAGISTRAL [Suspect]
     Active Substance: OMEPRAZOLE
     Indication: INFANTILE SPITTING UP
     Dosage: 2 ML
     Route: 048
     Dates: start: 20191122

REACTIONS (1)
  - Hypertrichosis [Not Recovered/Not Resolved]

NARRATIVE: CASE EVENT DATE: 20200120
